FAERS Safety Report 17884712 (Version 1)
Quarter: 2020Q2

REPORT INFORMATION
  Report Type: Spontaneous
  Country: GB (occurrence: GB)
  Receive Date: 20200611
  Receipt Date: 20200611
  Transmission Date: 20200714
  Serious: Yes (Hospitalization, Other)
  Sender: FDA-Public Use
  Company Number: GB-ASTELLAS-2020US019691

PATIENT
  Age: 32 Year
  Sex: Female

DRUGS (4)
  1. TACROLIMUS SYSTEMIC [Suspect]
     Active Substance: TACROLIMUS
     Indication: LUNG TRANSPLANT
     Dosage: UNK, UNKNOWN FREQ.
     Route: 065
  2. POSACONAZOLE [Concomitant]
     Active Substance: POSACONAZOLE
     Indication: ANTIFUNGAL PROPHYLAXIS
     Dosage: UNK UNK, UNKNOWN FREQ.
     Route: 048
  3. ISAVUCONAZOLE [Suspect]
     Active Substance: ISAVUCONAZOLE
     Dosage: UNK UNK, UNKNOWN FREQ. (INCREASED DOSE)
     Route: 065
  4. ISAVUCONAZOLE [Suspect]
     Active Substance: ISAVUCONAZOLE
     Indication: FUSARIUM INFECTION
     Dosage: UNK UNK, UNKNOWN FREQ.
     Route: 065

REACTIONS (5)
  - Fusarium infection [Recovered/Resolved]
  - Pneumonia [Recovered/Resolved]
  - Respiratory syncytial virus infection [Recovered/Resolved]
  - Bacterial infection [Recovered/Resolved]
  - Product use in unapproved indication [Unknown]
